FAERS Safety Report 10660698 (Version 3)
Quarter: 2015Q1

REPORT INFORMATION
  Report Type: Spontaneous
  Country: US (occurrence: US)
  Receive Date: 20141217
  Receipt Date: 20150327
  Transmission Date: 20150720
  Serious: Yes (Other)
  Sender: FDA-Public Use
  Company Number: US-GLAXOSMITHKLINE-A1091083A

PATIENT
  Sex: Male
  Weight: 93.2 kg

DRUGS (1)
  1. VOTRIENT [Suspect]
     Active Substance: PAZOPANIB HYDROCHLORIDE
     Indication: RENAL CANCER
     Dosage: (4) 200 MG TABLETS
     Route: 048

REACTIONS (5)
  - Intra-abdominal haematoma [Unknown]
  - Haemorrhage coronary artery [Unknown]
  - Pancreatic cyst [Unknown]
  - Pancreatitis [Unknown]
  - Abdominal discomfort [Unknown]
